FAERS Safety Report 10713129 (Version 1)
Quarter: 2015Q1

REPORT INFORMATION
  Report Type: Spontaneous
  Country: US (occurrence: None)
  Receive Date: 20150114
  Receipt Date: 20150114
  Transmission Date: 20150721
  Serious: Yes (Life-Threatening)
  Sender: FDA-Public Use
  Company Number: None

PATIENT
  Age: 69 Year
  Sex: Female
  Weight: 95.26 kg

DRUGS (1)
  1. NIFEDIPINE ER [Suspect]
     Active Substance: NIFEDIPINE
     Indication: HYPERTENSION
     Dosage: ONE TABLET TWICE DAILY TAKEN BY MOUTH
     Route: 048
     Dates: start: 20141106, end: 20150106

REACTIONS (20)
  - Depressed level of consciousness [None]
  - Chest pain [None]
  - Back pain [None]
  - Impaired driving ability [None]
  - Vision blurred [None]
  - Head discomfort [None]
  - Pulse abnormal [None]
  - Breath odour [None]
  - Tongue disorder [None]
  - Ear discomfort [None]
  - Pollakiuria [None]
  - Hyposthenuria [None]
  - No reaction on previous exposure to drug [None]
  - Dysgeusia [None]
  - Heart rate decreased [None]
  - Mobility decreased [None]
  - Headache [None]
  - Malaise [None]
  - Ocular discomfort [None]
  - Pain [None]

NARRATIVE: CASE EVENT DATE: 20150106
